FAERS Safety Report 5576410-6 (Version None)
Quarter: 2007Q4

REPORT INFORMATION
  Report Type: 
  Country: None (occurrence: None)
  Receive Date: 20071130
  Receipt Date: 20070919
  Transmission Date: 20080405
  Serious: No
  Sender: FDA-Public Use
  Company Number: US200709004227

PATIENT
  Sex: Male

DRUGS (1)
  1. BYETTA [Suspect]
     Indication: MEMORY IMPAIRMENT
     Dosage: SUBCUTANEOUS
     Route: 058
     Dates: start: 20070401

REACTIONS (2)
  - ACCIDENTAL NEEDLE STICK [None]
  - INJECTION SITE HAEMORRHAGE [None]
